FAERS Safety Report 10737845 (Version 1)
Quarter: 2015Q1

REPORT INFORMATION
  Report Type: Spontaneous
  Country: US (occurrence: US)
  Receive Date: 20150126
  Receipt Date: 20150126
  Transmission Date: 20150721
  Serious: No
  Sender: FDA-Public Use
  Company Number: US-SA-2014SA025564

PATIENT
  Age: 74 Year
  Sex: Female

DRUGS (1)
  1. LASIX [Suspect]
     Active Substance: FUROSEMIDE
     Route: 048

REACTIONS (2)
  - Blood potassium decreased [Unknown]
  - Oropharyngeal pain [Unknown]
